FAERS Safety Report 22962671 (Version 2)
Quarter: 2023Q4

REPORT INFORMATION
  Report Type: Spontaneous
  Country: HU (occurrence: HU)
  Receive Date: 20230920
  Receipt Date: 20231002
  Transmission Date: 20240109
  Serious: Yes (Other)
  Sender: FDA-Public Use
  Company Number: HU-PFIZER INC-PV202300156416

PATIENT

DRUGS (1)
  1. LORLATINIB [Suspect]
     Active Substance: LORLATINIB
     Dosage: UNK

REACTIONS (3)
  - Neuropathy peripheral [Unknown]
  - Hallucination [Unknown]
  - Oedema [Unknown]
